FAERS Safety Report 14138446 (Version 1)
Quarter: 2017Q4

REPORT INFORMATION
  Report Type: Spontaneous
  Country: US (occurrence: US)
  Receive Date: 20171027
  Receipt Date: 20171027
  Transmission Date: 20180321
  Serious: No
  Sender: FDA-Public Use
  Company Number: US-ROCHE-1919591

PATIENT
  Age: 3 Month
  Sex: Female

DRUGS (1)
  1. TAMIFLU [Suspect]
     Active Substance: OSELTAMIVIR PHOSPHATE
     Indication: INFLUENZA
     Dosage: 2 TIMES A DAY FOR 5 DAYS
     Route: 048
     Dates: start: 20170407

REACTIONS (3)
  - Lethargy [Unknown]
  - Vomiting projectile [Unknown]
  - Influenza [Unknown]

NARRATIVE: CASE EVENT DATE: 20170407
